FAERS Safety Report 10331349 (Version 3)
Quarter: 2014Q4

REPORT INFORMATION
  Report Type: Spontaneous
  Country: US (occurrence: None)
  Receive Date: 20140718
  Receipt Date: 20141020
  Transmission Date: 20150528
  Serious: Yes (Death, Hospitalization, Other)
  Sender: FDA-Public Use
  Company Number: UNT-2014-003845

PATIENT
  Age: 66 Year
  Sex: Female
  Weight: 90 kg

DRUGS (3)
  1. TYVASO [Suspect]
     Active Substance: TREPROSTINIL
     Indication: COR PULMONALE CHRONIC
     Route: 055
  2. ADCIRCA [Concomitant]
     Active Substance: TADALAFIL
  3. COUMADIN [Concomitant]
     Active Substance: WARFARIN SODIUM

REACTIONS (17)
  - Bronchiectasis [None]
  - Respiratory distress [None]
  - Acute respiratory failure [None]
  - Embolism [None]
  - Hypoxia [None]
  - Sepsis [None]
  - Colitis [None]
  - Pulse absent [None]
  - Gastrointestinal haemorrhage [None]
  - Arteriosclerosis [None]
  - Pleural effusion [None]
  - Clostridium difficile colitis [None]
  - Bronchopneumonia [None]
  - Septic shock [None]
  - Congestive cardiomyopathy [None]
  - Petechiae [None]
  - Pupil fixed [None]

NARRATIVE: CASE EVENT DATE: 2014
